FAERS Safety Report 9333012 (Version 1)
Quarter: 2013Q2

REPORT INFORMATION
  Report Type: Spontaneous
  Country: IT (occurrence: IT)
  Receive Date: 20130606
  Receipt Date: 20130606
  Transmission Date: 20140414
  Serious: Yes (Other)
  Sender: FDA-Public Use
  Company Number: IT-PFIZER INC-2013171156

PATIENT
  Age: 61 Year
  Sex: Female

DRUGS (1)
  1. FARMORUBICINA [Suspect]
     Indication: BREAST CANCER RECURRENT
     Dosage: 49 MG, CYCLIC
     Route: 042
     Dates: start: 20130418, end: 20130503

REACTIONS (3)
  - Ototoxicity [Recovered/Resolved with Sequelae]
  - Deafness [Recovered/Resolved with Sequelae]
  - Dizziness [Recovered/Resolved with Sequelae]
